FAERS Safety Report 7999573-1 (Version None)
Quarter: 2011Q4

REPORT INFORMATION
  Report Type: 
  Country: None (occurrence: None)
  Receive Date: 20111221
  Receipt Date: 20111215
  Transmission Date: 20120403
  Serious: No
  Sender: FDA-Public Use
  Company Number: US-PFIZER INC-2011197334

PATIENT
  Sex: Male

DRUGS (1)
  1. IBUPROFEN (ADVIL) [Suspect]
     Indication: ARTHRITIS
     Dosage: 800 MG, DAILY
     Route: 048
     Dates: start: 20110801, end: 20110801

REACTIONS (2)
  - URTICARIA [None]
  - ERYTHEMA [None]
